FAERS Safety Report 9482456 (Version 1)
Quarter: 2013Q3

REPORT INFORMATION
  Report Type: Spontaneous
  Country: CA (occurrence: None)
  Receive Date: 20130822
  Receipt Date: 20130822
  Transmission Date: 20140515
  Serious: Yes (Life-Threatening, Hospitalization)
  Sender: FDA-Public Use
  Company Number: 2013AP007352

PATIENT
  Sex: Female

DRUGS (3)
  1. APO-DIVALPROEX (VALPROATE SEMISODIUM) [Suspect]
     Dosage: 375MG;TAB;PO;QD
     Route: 048
  2. EPIVAL [Concomitant]
  3. RISPERIDONE (RISPERIDONE) [Concomitant]

REACTIONS (5)
  - Crying [None]
  - Irritability [None]
  - Mania [None]
  - Product substitution issue [None]
  - Anxiety [None]
